FAERS Safety Report 5619436-6 (Version None)
Quarter: 2008Q1

REPORT INFORMATION
  Report Type: 
  Country: None (occurrence: None)
  Receive Date: 20080109
  Receipt Date: 20070402
  Transmission Date: 20080703
  Serious: Yes (Other)
  Sender: FDA-Public Use
  Company Number: WAES 0704USA00420

PATIENT
  Age: 61 Year
  Sex: Female

DRUGS (5)
  1. ZETIA [Suspect]
     Indication: HYPERLIPIDAEMIA
     Dates: start: 20060402, end: 20070415
  2. VALIUM [Concomitant]
  3. WELLBUTRIN XL [Concomitant]
  4. LISINOPRIL AND HYDROCHLOROTHIAZIDE [Concomitant]
  5. METHYLPHENIDATE HCL [Concomitant]

REACTIONS (8)
  - DRUG INEFFECTIVE [None]
  - ERYTHEMA [None]
  - INFLAMMATION [None]
  - MYOSITIS [None]
  - OEDEMA PERIPHERAL [None]
  - PAIN IN EXTREMITY [None]
  - PRURITUS [None]
  - RHABDOMYOLYSIS [None]
